FAERS Safety Report 14934982 (Version 1)
Quarter: 2018Q2

REPORT INFORMATION
  Report Type: Spontaneous
  Country: US (occurrence: US)
  Receive Date: 20180524
  Receipt Date: 20180524
  Transmission Date: 20180711
  Serious: Yes (Other)
  Sender: FDA-Public Use
  Company Number: US-TEVA-2018-US-895021

PATIENT
  Age: 65 Year
  Sex: Male

DRUGS (20)
  1. LINEZOLID. [Suspect]
     Active Substance: LINEZOLID
     Indication: LIVER ABSCESS
     Route: 042
  2. VANCOMYCIN [Suspect]
     Active Substance: VANCOMYCIN
     Indication: LIVER ABSCESS
     Route: 042
  3. LEVOFLOXACIN. [Concomitant]
     Active Substance: LEVOFLOXACIN
     Route: 042
  4. PIPERACILLIN AND TAZOBACTAM [Concomitant]
     Active Substance: PIPERACILLIN SODIUM\TAZOBACTAM SODIUM
     Route: 042
  5. LINEZOLID. [Suspect]
     Active Substance: LINEZOLID
     Dosage: PRESCRIBED FOR 12 DAYS
     Route: 048
  6. AMPICILLIN-SULBACTAM [Concomitant]
     Active Substance: AMPICILLIN SODIUM\SULBACTAM SODIUM
     Dosage: 875 AMPICILLIN -125 SULBACTAM Q12H (EVERY 12 HOURS)
     Route: 048
  7. FLUCONAZOLE. [Concomitant]
     Active Substance: FLUCONAZOLE
     Route: 048
  8. TRIMETHOPRIM/SULFAMETHOXAZOLE [Concomitant]
     Active Substance: SULFAMETHOXAZOLE\TRIMETHOPRIM
     Route: 048
  9. DAPTOMYCIN. [Suspect]
     Active Substance: DAPTOMYCIN
     Indication: SEPSIS
     Route: 042
  10. CEFEPIME [Concomitant]
     Active Substance: CEFEPIME HYDROCHLORIDE
     Route: 042
  11. CEFEPIME [Concomitant]
     Active Substance: CEFEPIME HYDROCHLORIDE
     Route: 042
  12. VANCOMYCIN [Suspect]
     Active Substance: VANCOMYCIN
     Route: 042
  13. GENTAMICIN. [Concomitant]
     Active Substance: GENTAMICIN
     Route: 042
  14. GENTAMICIN. [Concomitant]
     Active Substance: GENTAMICIN
     Route: 042
  15. CASPOFUNGIN [Concomitant]
     Active Substance: CASPOFUNGIN
     Route: 042
  16. IMIPENEM [Concomitant]
     Active Substance: IMIPENEM
     Route: 042
  17. IMIPENEM [Concomitant]
     Active Substance: IMIPENEM
     Route: 042
  18. YTTRIUM-90 [Suspect]
     Active Substance: YTTRIUM Y-90
     Indication: HEPATOCELLULAR CARCINOMA
     Route: 013
  19. DAPTOMYCIN. [Suspect]
     Active Substance: DAPTOMYCIN
     Route: 042
  20. CEFTAZIDIME. [Concomitant]
     Active Substance: CEFTAZIDIME
     Route: 042

REACTIONS (3)
  - Liver abscess [Unknown]
  - Pathogen resistance [Recovering/Resolving]
  - Treatment failure [Unknown]
